FAERS Safety Report 14926679 (Version 6)
Quarter: 2018Q3

REPORT INFORMATION
  Report Type: Spontaneous
  Country: DE (occurrence: DE)
  Receive Date: 20180523
  Receipt Date: 20180822
  Transmission Date: 20181010
  Serious: Yes (Death)
  Sender: FDA-Public Use
  Company Number: DE-TEVA-2018-DE-896159

PATIENT
  Age: 60 Year
  Sex: Female
  Weight: 55 kg

DRUGS (9)
  1. OMEPRAZOL [Concomitant]
     Active Substance: OMEPRAZOLE
     Route: 048
  2. PROLIA [Concomitant]
     Active Substance: DENOSUMAB
  3. ROACTEMRA [Suspect]
     Active Substance: TOCILIZUMAB
     Indication: RHEUMATOID ARTHRITIS
  4. SPIRIVA [Concomitant]
     Active Substance: TIOTROPIUM BROMIDE MONOHYDRATE
     Indication: CHRONIC OBSTRUCTIVE PULMONARY DISEASE
     Route: 055
  5. PREDNISOLONE. [Suspect]
     Active Substance: PREDNISOLONE
     Indication: RHEUMATOID ARTHRITIS
     Dosage: 5 MILLIGRAM DAILY;
     Route: 048
  6. TOCILIZUMAB. [Suspect]
     Active Substance: TOCILIZUMAB
     Indication: RHEUMATOID ARTHRITIS
     Dosage: DAILY DOSE: 1 DF DOSAGE FORM EVERY WEEKS
  7. MOVICOL [Concomitant]
     Active Substance: POLYETHYLENE GLYCOL 3350\POTASSIUM CHLORIDE\SODIUM BICARBONATE\SODIUM CHLORIDE
     Route: 048
  8. L?THYROXIN [Concomitant]
     Active Substance: LEVOTHYROXINE SODIUM
     Route: 048
  9. RAMIPRIL. [Concomitant]
     Active Substance: RAMIPRIL
     Indication: HYPERTENSION
     Dosage: 7.5 DOSAGE FORMS DAILY;
     Route: 048

REACTIONS (5)
  - Pneumonia [Fatal]
  - Acute abdomen [Fatal]
  - Immunosuppression [Fatal]
  - Intestinal ischaemia [Fatal]
  - Sepsis [Fatal]

NARRATIVE: CASE EVENT DATE: 20180225
